FAERS Safety Report 22022533 (Version 2)
Quarter: 2023Q2

REPORT INFORMATION
  Report Type: Spontaneous
  Country: US (occurrence: US)
  Receive Date: 20230222
  Receipt Date: 20230519
  Transmission Date: 20230721
  Serious: Yes (Other)
  Sender: FDA-Public Use
  Company Number: US-UPSHER-SMITH LABORATORIES, LLC-2022USL00996

PATIENT
  Age: 80 Year
  Sex: Female
  Weight: 97.506 kg

DRUGS (12)
  1. MOXIFLOXACIN [Suspect]
     Active Substance: MOXIFLOXACIN
     Indication: Vision blurred
     Dosage: 2 DROP (1 DROP INTO EACH EYE), 3X/DAY FOR 10 DAYS
     Route: 047
     Dates: start: 20221212, end: 20221216
  2. MOXIFLOXACIN [Suspect]
     Active Substance: MOXIFLOXACIN
     Indication: Purulent discharge
  3. MOXIFLOXACIN [Suspect]
     Active Substance: MOXIFLOXACIN
     Indication: Eyelid margin crusting
  4. LEVOTHYROXINE [Concomitant]
     Active Substance: LEVOTHYROXINE
  5. PRAVASTATIN [Concomitant]
     Active Substance: PRAVASTATIN
  6. VENLAFAXINE [Concomitant]
     Active Substance: VENLAFAXINE HYDROCHLORIDE
  7. ASPIRIN [Concomitant]
     Active Substance: ASPIRIN
  8. IBUPROFEN [Concomitant]
     Active Substance: IBUPROFEN
  9. TYLENOL [Concomitant]
     Active Substance: ACETAMINOPHEN
  10. IMODIUM [Concomitant]
     Active Substance: LOPERAMIDE HYDROCHLORIDE
  11. VITAMINS NOS [Concomitant]
     Active Substance: VITAMINS
  12. CALCIUM\VITAMIN D [Concomitant]
     Active Substance: CALCIUM\VITAMIN D

REACTIONS (1)
  - Visual acuity reduced [Not Recovered/Not Resolved]

NARRATIVE: CASE EVENT DATE: 20221215
